FAERS Safety Report 5882345-1 (Version None)
Quarter: 2008Q3

REPORT INFORMATION
  Report Type: 
  Country: None (occurrence: None)
  Receive Date: 20080912
  Receipt Date: 20080818
  Transmission Date: 20090109
  Serious: No
  Sender: FDA-Public Use
  Company Number: US-ABBOTT-08P-163-0467576-00

PATIENT
  Sex: Male
  Weight: 76.726 kg

DRUGS (3)
  1. HUMIRA [Suspect]
     Indication: CROHN'S DISEASE
     Route: 058
     Dates: start: 20080702
  2. HUMIRA [Suspect]
     Route: 058
     Dates: start: 20080618, end: 20080618
  3. HUMIRA [Suspect]
     Route: 058
     Dates: start: 20080611, end: 20080611

REACTIONS (2)
  - INAPPROPRIATE SCHEDULE OF DRUG ADMINISTRATION [None]
  - OVERDOSE [None]
